FAERS Safety Report 5225093-3 (Version None)
Quarter: 2007Q1

REPORT INFORMATION
  Report Type: 
  Country: None (occurrence: None)
  Receive Date: 20070129
  Receipt Date: 20070112
  Transmission Date: 20070707
  Serious: No
  Sender: FDA-Public Use
  Company Number: 2005EN000215

PATIENT
  Age: 6 Year
  Sex: Female
  Weight: 16.5 kg

DRUGS (7)
  1. ADAGEN [Suspect]
     Indication: COMBINED IMMUNODEFICIENCY
     Dosage: 30 IU/KG; QW; IM; SEE IMAGE
     Route: 030
     Dates: start: 19950626, end: 19950821
  2. ADAGEN [Suspect]
     Indication: COMBINED IMMUNODEFICIENCY
     Dosage: 30 IU/KG; QW; IM; SEE IMAGE
     Route: 030
     Dates: start: 19950822, end: 19990601
  3. ADAGEN [Suspect]
     Indication: COMBINED IMMUNODEFICIENCY
     Dosage: 30 IU/KG; QW; IM; SEE IMAGE
     Route: 030
     Dates: start: 20000701
  4. BACTRIM [Concomitant]
  5. IMMUNOGLOBULINS [Concomitant]
  6. ZOVIRAX [Concomitant]
  7. DIFLUCAN [Concomitant]

REACTIONS (6)
  - ASTHMA [None]
  - BENIGN INTRACRANIAL HYPERTENSION [None]
  - BLOOD IMMUNOGLOBULIN E INCREASED [None]
  - COOMBS TEST POSITIVE [None]
  - HAEMOLYTIC ANAEMIA [None]
  - PAPILLOEDEMA [None]
